FAERS Safety Report 20747982 (Version 3)
Quarter: 2022Q3

REPORT INFORMATION
  Report Type: Spontaneous
  Country: US (occurrence: US)
  Receive Date: 20220425
  Receipt Date: 20220926
  Transmission Date: 20221027
  Serious: Yes (Other)
  Sender: FDA-Public Use
  Company Number: US-BIOGEN-2021BI01037244

PATIENT
  Age: 59 Year
  Sex: Female

DRUGS (9)
  1. VUMERITY [Suspect]
     Active Substance: DIROXIMEL FUMARATE
     Indication: Multiple sclerosis
     Route: 050
     Dates: start: 20210721, end: 20220301
  2. VUMERITY [Suspect]
     Active Substance: DIROXIMEL FUMARATE
     Route: 050
     Dates: start: 20210726, end: 20210801
  3. VUMERITY [Suspect]
     Active Substance: DIROXIMEL FUMARATE
     Route: 050
     Dates: start: 20210802
  4. CYCLOBENZAPRINE [Concomitant]
     Active Substance: CYCLOBENZAPRINE
     Indication: Muscle spasticity
     Route: 050
  5. RITALIN [Concomitant]
     Active Substance: METHYLPHENIDATE HYDROCHLORIDE
     Indication: Disturbance in attention
     Route: 050
  6. BLACK COHOSH [Concomitant]
     Active Substance: BLACK COHOSH
     Indication: Menopausal symptoms
     Route: 050
  7. VITAMIN D NOS [Concomitant]
     Active Substance: VITAMIN D NOS
     Indication: Vitamin D decreased
     Route: 050
  8. METOPROLOL [Concomitant]
     Active Substance: METOPROLOL
     Indication: Hypertension
     Route: 050
  9. ZEPHOLIN [THEOPHYLLINE] [Concomitant]
     Indication: Insomnia
     Route: 050

REACTIONS (16)
  - Blindness [Unknown]
  - Product dose omission issue [Unknown]
  - Hyperhidrosis [Not Recovered/Not Resolved]
  - Rash morbilliform [Unknown]
  - Eye haemorrhage [Unknown]
  - Dyspnoea [Unknown]
  - Multiple sclerosis relapse [Unknown]
  - Conjunctivitis [Unknown]
  - Weight increased [Unknown]
  - Renal disorder [Unknown]
  - Rash erythematous [Recovered/Resolved]
  - Pyrexia [Recovered/Resolved]
  - Flushing [Not Recovered/Not Resolved]
  - Nausea [Not Recovered/Not Resolved]
  - Feeling hot [Unknown]
  - Pruritus [Recovered/Resolved]

NARRATIVE: CASE EVENT DATE: 20210804
